FAERS Safety Report 13870796 (Version 2)
Quarter: 2017Q4

REPORT INFORMATION
  Report Type: Spontaneous
  Country: US (occurrence: US)
  Receive Date: 20170816
  Receipt Date: 20171003
  Transmission Date: 20180320
  Serious: Yes (Hospitalization)
  Sender: FDA-Public Use
  Company Number: US-ASTRAZENECA-2017SE81558

PATIENT
  Age: 24703 Day
  Sex: Male
  Weight: 88.5 kg

DRUGS (6)
  1. SYNTHROID [Concomitant]
     Active Substance: LEVOTHYROXINE SODIUM
     Indication: THYROIDECTOMY
     Route: 048
  2. MULTIVITAMIN [Concomitant]
     Active Substance: VITAMINS
     Route: 048
  3. HYDROCHLOROTHIAZIDE. [Concomitant]
     Active Substance: HYDROCHLOROTHIAZIDE
     Indication: BLOOD PRESSURE ABNORMAL
     Route: 048
  4. SYMBICORT [Suspect]
     Active Substance: BUDESONIDE\FORMOTEROL FUMARATE DIHYDRATE
     Indication: CHRONIC OBSTRUCTIVE PULMONARY DISEASE
     Dosage: 160-4.5 2 PUFFS, TWO TIMES A DAY
     Route: 055
  5. BABY ASPIRIN [Concomitant]
     Active Substance: ASPIRIN
     Indication: THYROIDECTOMY
     Dosage: DAILY
     Route: 048
  6. ALBUTEROL SULFATE. [Concomitant]
     Active Substance: ALBUTEROL SULFATE
     Indication: PANIC DISORDER
     Dosage: AS NEEDED UP TO 6 PER DAY

REACTIONS (3)
  - Product quality issue [Unknown]
  - Alcoholism [Unknown]
  - Off label use of device [Unknown]

NARRATIVE: CASE EVENT DATE: 20170522
